FAERS Safety Report 4594376-2 (Version None)
Quarter: 2005Q1

REPORT INFORMATION
  Report Type: 
  Country: None (occurrence: None)
  Receive Date: 20050301
  Receipt Date: 20041210
  Transmission Date: 20050727
  Serious: No
  Sender: FDA-Public Use
  Company Number: US-GLAXOSMITHKLINE-A0536862A

PATIENT
  Age: 73 Year
  Sex: Female

DRUGS (2)
  1. VALTREX [Suspect]
     Indication: HERPES ZOSTER
     Dosage: 1G TWICE PER DAY
     Route: 048
  2. COUMADIN [Concomitant]

REACTIONS (2)
  - DIARRHOEA [None]
  - PROTHROMBIN TIME PROLONGED [None]
